FAERS Safety Report 13999832 (Version 1)
Quarter: 2017Q3

REPORT INFORMATION
  Report Type: Spontaneous
  Country: AU (occurrence: AU)
  Receive Date: 20170922
  Receipt Date: 20170922
  Transmission Date: 20171128
  Serious: Yes (Hospitalization)
  Sender: FDA-Public Use
  Company Number: AU-TEVA-807497ISR

PATIENT
  Sex: Male

DRUGS (4)
  1. OLANZAPINE (BRAND UNSPECIFIED) [Suspect]
     Active Substance: OLANZAPINE
     Dosage: 30 MG AT BED TIME
  2. LORAZEPAM (BRAND UNKNOWN) [Concomitant]
     Dosage: PRN (WHEN REQUIRED)
  3. QUETIAPINE/MANUFACTURER UNKNOWN) [Suspect]
     Active Substance: QUETIAPINE
  4. DESVENLAFAXINE/ MANUFACTURER UNKNOWN [Suspect]
     Active Substance: DESVENLAFAXINE
     Dosage: 150 MG MANE

REACTIONS (9)
  - Troponin increased [Unknown]
  - Hallucination, auditory [Unknown]
  - Physical disability [Unknown]
  - Anxiety [Unknown]
  - C-reactive protein decreased [Unknown]
  - Back pain [Unknown]
  - Delusion [Unknown]
  - Loss of personal independence in daily activities [Unknown]
  - Somatic delusion [Not Recovered/Not Resolved]
